FAERS Safety Report 16780048 (Version 1)
Quarter: 2019Q3

REPORT INFORMATION
  Report Type: Spontaneous
  Country: US (occurrence: US)
  Receive Date: 20190717
  Receipt Date: 20190717
  Transmission Date: 20191005
  Serious: Yes (Hospitalization)
  Sender: FDA-Public Use
  Company Number: None

PATIENT
  Age: 58 Year
  Sex: Male

DRUGS (10)
  1. AMIODARONE TAB [Concomitant]
  2. PANTOPRAZOLE TAB [Concomitant]
  3. HUMIRA [Suspect]
     Active Substance: ADALIMUMAB
     Indication: ANKYLOSING SPONDYLITIS
     Dosage: ?          OTHER FREQUENCY:EVERY 14 DAYS;?
     Route: 058
     Dates: start: 20170804
  4. CARVEDILOL TAB [Concomitant]
     Active Substance: CARVEDILOL
  5. CLONIDINE TAB [Concomitant]
  6. ELIQUIS [Concomitant]
     Active Substance: APIXABAN
  7. FUROSEMIDE TAB [Concomitant]
  8. SEVELAMER TAB [Concomitant]
  9. HYDRALAZINE TAB [Concomitant]
  10. METOPROL TAB [Concomitant]

REACTIONS (2)
  - Pneumonia [None]
  - Therapy cessation [None]

NARRATIVE: CASE EVENT DATE: 201906
